FAERS Safety Report 9842640 (Version 3)
Quarter: 2014Q1

REPORT INFORMATION
  Report Type: Spontaneous
  Country: GR (occurrence: GR)
  Receive Date: 20140124
  Receipt Date: 20140207
  Transmission Date: 20141002
  Serious: Yes (Death, Hospitalization)
  Sender: FDA-Public Use
  Company Number: PHHY2014GR007722

PATIENT
  Age: 22 Year
  Sex: Male

DRUGS (3)
  1. FORADIL [Suspect]
     Indication: ASTHMA
     Dosage: UNK
  2. FORADIL [Suspect]
     Dosage: 3 CAPSULES
     Dates: start: 20120227
  3. CORTICOSTEROIDS [Concomitant]
     Dosage: UNK UKN, UNK

REACTIONS (5)
  - Ventricular fibrillation [Fatal]
  - Drug administration error [Fatal]
  - Cardiac arrest [Fatal]
  - Asthma [Fatal]
  - Syncope [Unknown]
